FAERS Safety Report 9216642 (Version 1)
Quarter: 2013Q1

REPORT INFORMATION
  Report Type: Spontaneous
  Country: GR (occurrence: None)
  Receive Date: 20130212
  Receipt Date: 20130212
  Transmission Date: 20140127
  Serious: Yes (Hospitalization)
  Sender: FDA-Public Use
  Company Number: 7191647

PATIENT
  Age: 56 Year
  Sex: Female

DRUGS (10)
  1. LEVOTHYROXINE [Suspect]
  2. CARBAMAZEPINE (CARBAMAZEPINE) CHEWABLE TABLET [Suspect]
  3. METHOTREXATE (METHOTREXATE) [Suspect]
  4. FERROUS SULFATE (FERROUS SULFATE) [Concomitant]
  5. METHYLPREDNISOLONE (METHYLPREDNISOLONE) [Concomitant]
  6. ACENOCOUMAROL (ACENOCOUMAROL) [Concomitant]
  7. PANTOPRAZOLE (PANTOPRAZOLE) [Concomitant]
  8. FOLIC ACID (FOLIC ACID) [Concomitant]
  9. ACETYLSALICYLIC ACID (ACETYLSALICYLIC ACID) [Concomitant]
  10. ALFACALCIDOL (ALFACALCIDOL) [Concomitant]

REACTIONS (3)
  - Bone marrow toxicity [None]
  - Subacute endocarditis [None]
  - Blood culture positive [None]
